FAERS Safety Report 9565112 (Version 1)
Quarter: 2013Q3

REPORT INFORMATION
  Report Type: Report from Study
  Country: US (occurrence: US)
  Receive Date: 20130930
  Receipt Date: 20130930
  Transmission Date: 20140515
  Serious: Yes (Hospitalization, Other)
  Sender: FDA-Public Use
  Company Number: US-ABBVIE-13P-163-1149918-00

PATIENT
  Age: 61 Year
  Sex: Female
  Weight: 70.37 kg

DRUGS (12)
  1. HUMIRA [Suspect]
     Indication: PSORIASIS
     Route: 058
     Dates: start: 2009, end: 20130120
  2. METFORMIN [Concomitant]
     Indication: DIABETES MELLITUS
  3. GLIPIZIDE [Concomitant]
     Indication: DIABETES MELLITUS
  4. ACTOS [Concomitant]
     Indication: DIABETES MELLITUS
  5. TRICOR [Concomitant]
     Indication: BLOOD CHOLESTEROL INCREASED
  6. SIMVASTATIN [Concomitant]
     Indication: BLOOD CHOLESTEROL INCREASED
  7. VENTOLIN [Concomitant]
     Indication: ASTHMA
  8. SINGULAIR [Concomitant]
     Indication: HYPERSENSITIVITY
  9. SINGULAIR [Concomitant]
     Indication: ASTHMA
  10. L-THYROXINE [Concomitant]
     Indication: HYPOTHYROIDISM
  11. OMEPRAZOLE [Concomitant]
     Indication: DYSPEPSIA
  12. BIESTRO [Concomitant]
     Indication: OESTROGEN REPLACEMENT THERAPY
     Dosage: 1.25/100

REACTIONS (15)
  - Delirium [Recovered/Resolved]
  - Influenza like illness [Recovered/Resolved]
  - Fatigue [Recovered/Resolved]
  - Pyrexia [Recovered/Resolved]
  - Decreased appetite [Recovered/Resolved]
  - Blood glucose increased [Recovered/Resolved]
  - Pneumonia [Recovered/Resolved]
  - Escherichia infection [Recovered/Resolved]
  - Blood potassium decreased [Recovered/Resolved]
  - Organ failure [Recovered/Resolved]
  - Nephrolithiasis [Not Recovered/Not Resolved]
  - White blood cell count increased [Recovered/Resolved]
  - Chronic obstructive pulmonary disease [Not Recovered/Not Resolved]
  - Psoriasis [Not Recovered/Not Resolved]
  - Urinary tract infection [Recovered/Resolved]
